FAERS Safety Report 15654283 (Version 1)
Quarter: 2018Q4

REPORT INFORMATION
  Report Type: Spontaneous
  Country: DK (occurrence: DK)
  Receive Date: 20181125
  Receipt Date: 20181125
  Transmission Date: 20190205
  Serious: Yes (Death, Other)
  Sender: FDA-Public Use
  Company Number: DK-BRISTOL-MYERS SQUIBB COMPANY-BMS-2018-108324

PATIENT
  Age: 58 Year
  Sex: Male

DRUGS (2)
  1. SPRYCEL [Suspect]
     Active Substance: DASATINIB
     Indication: ACUTE LYMPHOCYTIC LEUKAEMIA
     Dosage: 140 MG, (1 DAY)
     Route: 048
     Dates: start: 20130313, end: 20130404
  2. VANCOMYCIN [Concomitant]
     Active Substance: VANCOMYCIN
     Indication: ANTIBIOTIC THERAPY
     Dosage: UNK
     Route: 065

REACTIONS (12)
  - Pulmonary fibrosis [Fatal]
  - Pneumonia [Unknown]
  - Pericardial fibrosis [Unknown]
  - Ascites [Recovering/Resolving]
  - Pleural effusion [Unknown]
  - Toxic epidermal necrolysis [Recovered/Resolved with Sequelae]
  - Pleural fibrosis [Fatal]
  - Staphylococcal sepsis [Unknown]
  - Chronic sinusitis [Unknown]
  - Neuropathy peripheral [Unknown]
  - Pulmonary embolism [Unknown]
  - Respiratory failure [Fatal]

NARRATIVE: CASE EVENT DATE: 2013
